FAERS Safety Report 22315992 (Version 1)
Quarter: 2023Q2

REPORT INFORMATION
  Report Type: Report from Study
  Country: US (occurrence: US)
  Receive Date: 20230512
  Receipt Date: 20230512
  Transmission Date: 20230722
  Serious: Yes (Death, Hospitalization, Other)
  Sender: FDA-Public Use
  Company Number: US-GILEAD-2023-0621154

PATIENT
  Age: 77 Year
  Sex: Male
  Weight: 86 kg

DRUGS (19)
  1. BREXUCABTAGENE AUTOLEUCEL [Suspect]
     Active Substance: BREXUCABTAGENE AUTOLEUCEL
     Indication: Mantle cell lymphoma
     Dosage: 68 ONCE
     Route: 042
     Dates: start: 20221228, end: 20221228
  2. FLUDARABINE [Suspect]
     Active Substance: FLUDARABINE PHOSPHATE
     Indication: Bone marrow conditioning regimen
     Dosage: 60 QD
     Route: 042
     Dates: start: 20221222, end: 20221224
  3. CYCLOPHOSPHAMIDE [Suspect]
     Active Substance: CYCLOPHOSPHAMIDE
     Indication: Bone marrow conditioning regimen
     Dosage: 1000 QD
     Route: 042
     Dates: start: 20221222, end: 20221224
  4. CYTARABINE [Suspect]
     Active Substance: CYTARABINE
     Indication: Bone marrow conditioning regimen
     Dosage: 3880
     Route: 065
     Dates: start: 20221208, end: 20221209
  5. ASPIRIN [Concomitant]
     Active Substance: ASPIRIN
     Dosage: 81,MG,DAILY
     Route: 048
     Dates: start: 202006
  6. ALLOPURINOL [Concomitant]
     Active Substance: ALLOPURINOL
     Dosage: 300,MG,DAILY
     Route: 048
     Dates: start: 20221129
  7. FLUCONAZOLE [Concomitant]
     Active Substance: FLUCONAZOLE
     Dosage: 400,MG,DAILY
     Route: 048
     Dates: start: 20221225
  8. MELATONIN [Concomitant]
     Active Substance: MELATONIN
     Dosage: 3,MG,OTHER
     Route: 048
     Dates: start: 20221227
  9. EZETIMIBE [Concomitant]
     Active Substance: EZETIMIBE
     Dosage: 10,MG,DAILY
     Route: 048
     Dates: start: 20221228
  10. CALCIUM CARBONATE [Concomitant]
     Active Substance: CALCIUM CARBONATE
     Dosage: 500,MG,DAILY
     Route: 048
     Dates: start: 20230118
  11. PROCHLORPERAZINE [Concomitant]
     Active Substance: PROCHLORPERAZINE
     Dosage: 5,MG,FOUR TIMES DAILY
     Route: 048
     Dates: start: 20230125
  12. ACETAMINOPHEN [Concomitant]
     Active Substance: ACETAMINOPHEN
     Dosage: 650,MG,FOUR TIMES DAILY
     Route: 048
     Dates: start: 20230125
  13. ACYCLOVIR [Concomitant]
     Active Substance: ACYCLOVIR
     Dosage: 400,MG,TWICE DAILY
     Route: 048
     Dates: start: 20230125
  14. ALBUTEROL [Concomitant]
     Active Substance: ALBUTEROL
     Dosage: 2,OTHER,THREE TIMES DAILY
     Route: 055
     Dates: start: 20230125
  15. CEFDINIR [Concomitant]
     Active Substance: CEFDINIR
     Dosage: 300,MG,TWICE DAILY
     Route: 048
     Dates: start: 20230126
  16. LEVETIRACETAM [Concomitant]
     Active Substance: LEVETIRACETAM
     Dosage: 500,MG,TWICE DAILY
     Route: 048
     Dates: start: 20230126
  17. ASCORBIC ACID [Concomitant]
     Active Substance: ASCORBIC ACID
     Dosage: 500,MG,DAILY
     Route: 048
     Dates: start: 20230126
  18. GANCICLOVIR [Concomitant]
     Active Substance: GANCICLOVIR
     Dosage: 700,MG,DAILY
     Route: 042
     Dates: start: 20230131, end: 20230228
  19. CEFEPIME [Concomitant]
     Active Substance: CEFEPIME HYDROCHLORIDE
     Dosage: UNK
     Dates: start: 20230218, end: 20230222

REACTIONS (6)
  - Mucormycosis [Fatal]
  - Actinomycosis [Fatal]
  - Bacteraemia [Fatal]
  - Clostridial infection [Fatal]
  - Staphylococcal infection [Recovered/Resolved]
  - Systemic candida [Recovered/Resolved]

NARRATIVE: CASE EVENT DATE: 20230228
